FAERS Safety Report 24878434 (Version 1)
Quarter: 2025Q1

REPORT INFORMATION
  Report Type: Other
  Country: US (occurrence: US)
  Receive Date: 20250123
  Receipt Date: 20250123
  Transmission Date: 20250408
  Serious: Yes (Other)
  Sender: CREEKWOOD PHARMACEUTICALS LLC
  Company Number: US-Creekwood Pharmaceuticals LLC-2169638

PATIENT
  Age: 77 Year
  Sex: Female

DRUGS (2)
  1. HYDROXYCHLOROQUINE SULFATE [Suspect]
     Active Substance: HYDROXYCHLOROQUINE SULFATE
     Indication: Normocytic anaemia
  2. HYDROXYCHLOROQUINE SULFATE [Suspect]
     Active Substance: HYDROXYCHLOROQUINE SULFATE
     Indication: Sjogren^s syndrome

REACTIONS (5)
  - Clostridium bacteraemia [Recovered/Resolved]
  - Product use in unapproved indication [Unknown]
  - Large intestine perforation [Recovered/Resolved]
  - Septic shock [Recovered/Resolved]
  - Immunodeficiency [Recovered/Resolved]
